FAERS Safety Report 4335694-2 (Version None)
Quarter: 2004Q2

REPORT INFORMATION
  Report Type: 
  Country: None (occurrence: None)
  Receive Date: 20040406
  Receipt Date: 20040325
  Transmission Date: 20050107
  Serious: Yes (Hospitalization)
  Sender: FDA-Public Use
  Company Number: 04P-155-0254886-00

PATIENT
  Age: 41 Year
  Sex: Female
  Weight: 46 kg

DRUGS (6)
  1. NORVIR [Suspect]
     Indication: HIV INFECTION
     Dosage: SEE IMAGE
     Route: 048
     Dates: start: 20040122, end: 20040101
  2. NORVIR [Suspect]
     Indication: HIV INFECTION
     Dosage: SEE IMAGE
     Route: 048
     Dates: start: 20040303, end: 20040304
  3. TENOFOVIR [Concomitant]
  4. LAMIVUDINE [Concomitant]
  5. SAQUINAVIR [Concomitant]
  6. EFAVIRENZ [Concomitant]

REACTIONS (4)
  - CERVICAL DYSPLASIA [None]
  - NAUSEA [None]
  - POST PROCEDURAL PAIN [None]
  - VOMITING [None]
